FAERS Safety Report 11339665 (Version 1)
Quarter: 2015Q3

REPORT INFORMATION
  Report Type: Spontaneous
  Country: US (occurrence: US)
  Receive Date: 20150805
  Receipt Date: 20150805
  Transmission Date: 20151125
  Serious: Yes (Other)
  Sender: FDA-Public Use
  Company Number: US-ROCHE-1597836

PATIENT
  Sex: Female

DRUGS (2)
  1. XELODA [Suspect]
     Active Substance: CAPECITABINE
     Dosage: 3 TABS BID
     Route: 048
     Dates: start: 201504
  2. XELODA [Suspect]
     Active Substance: CAPECITABINE
     Indication: PRODUCT USED FOR UNKNOWN INDICATION
     Dosage: BID 14 DAYS ON
     Route: 048
     Dates: start: 20150415

REACTIONS (6)
  - Decubitus ulcer [Unknown]
  - Pain [Unknown]
  - Contusion [Unknown]
  - Oedema [Unknown]
  - Metastases to liver [Unknown]
  - Myalgia [Unknown]
